FAERS Safety Report 23334652 (Version 1)
Quarter: 2023Q4

REPORT INFORMATION
  Report Type: Other
  Country: US (occurrence: US)
  Receive Date: 20231224
  Receipt Date: 20231224
  Transmission Date: 20240109
  Serious: No
  Sender: FDA-Public Use
  Company Number: US-TRAVERE-2023TVT00761

PATIENT
  Sex: Male
  Weight: 180 kg

DRUGS (6)
  1. FILSPARI [Suspect]
     Active Substance: SPARSENTAN
     Indication: IgA nephropathy
     Route: 048
  2. FARXIGA [Concomitant]
     Active Substance: DAPAGLIFLOZIN PROPANEDIOL
  3. OMEPRAZOLE [Concomitant]
     Active Substance: OMEPRAZOLE
  4. SERTRALINE HYDROCHLORIDE [Concomitant]
     Active Substance: SERTRALINE HYDROCHLORIDE
  5. VITAMIN D3 [Concomitant]
     Active Substance: CHOLECALCIFEROL
  6. VITAMIN C [Concomitant]
     Active Substance: ASCORBIC ACID

REACTIONS (2)
  - Urine odour abnormal [None]
  - Drug effect less than expected [Unknown]
